FAERS Safety Report 12718942 (Version 1)
Quarter: 2016Q3

REPORT INFORMATION
  Report Type: Other
  Country: US (occurrence: US)
  Receive Date: 20160906
  Receipt Date: 20160906
  Transmission Date: 20161109
  Serious: No
  Sender: FDA-Public Use
  Company Number: US-COL_20424_2015

PATIENT
  Sex: Female

DRUGS (2)
  1. COLGATE TOTAL ADVANCE WHITENING [Suspect]
     Active Substance: SODIUM FLUORIDE\TRICLOSAN
     Indication: PRODUCT USED FOR UNKNOWN INDICATION
     Dosage: APPLIED A LITTLE AMOUNT TO TOOTHBRUSH HEAD/TID OR QID/
     Route: 048
     Dates: start: 2010, end: 2010
  2. COLGATE SENSITIVE COMPLETE PROTECTION [Suspect]
     Active Substance: POTASSIUM NITRATE\SODIUM FLUORIDE
     Indication: PRODUCT USED FOR UNKNOWN INDICATION
     Dosage: APPLIED A LITTLE AMOUNT TO TOOTHBRUSH HEAD/TID OR QID/
     Route: 048
     Dates: start: 2015

REACTIONS (4)
  - Oral discomfort [Unknown]
  - Palatal swelling [Unknown]
  - Swelling face [Unknown]
  - Oral mucosal erythema [Unknown]

NARRATIVE: CASE EVENT DATE: 2010
